FAERS Safety Report 9199052 (Version 1)
Quarter: 2013Q1

REPORT INFORMATION
  Report Type: Spontaneous
  Country: US (occurrence: US)
  Receive Date: 20130329
  Receipt Date: 20130329
  Transmission Date: 20140127
  Serious: No
  Sender: FDA-Public Use
  Company Number: US-PFIZER INC-2013098066

PATIENT
  Age: 54 Year
  Sex: Male
  Weight: 106.58 kg

DRUGS (4)
  1. LYRICA [Suspect]
     Indication: NEUROPATHY PERIPHERAL
     Dosage: 75 MG, 2X/DAY
     Dates: start: 2012
  2. NADOLOL [Concomitant]
     Indication: HYPERTENSION
     Dosage: 160 MG, 2X/DAY
  3. LISINOPRIL [Concomitant]
     Indication: HYPERTENSION
     Dosage: 20 MG, 1X/DAY
  4. METFORMIN [Concomitant]
     Indication: DIABETES MELLITUS
     Dosage: 500 MG, 3X/DAY

REACTIONS (3)
  - Oedema mouth [Unknown]
  - Oral disorder [Unknown]
  - Drug ineffective [Unknown]
